FAERS Safety Report 8437503-9 (Version None)
Quarter: 2012Q2

REPORT INFORMATION
  Report Type: 
  Country: None (occurrence: None)
  Receive Date: 20120614
  Receipt Date: 20120502
  Transmission Date: 20120825
  Serious: No
  Sender: FDA-Public Use
  Company Number: US-AMGEN-USASP2012027904

PATIENT
  Sex: Female

DRUGS (8)
  1. POTASSIUM CHLORIDE [Concomitant]
     Dosage: UNK UNK, QD
  2. ACIPHEX [Concomitant]
     Dosage: 2 UNK, UNK
  3. LISINOPRIL [Concomitant]
     Dosage: 1 UNK, UNK
  4. PROLIA [Suspect]
     Indication: OSTEOPOROSIS POSTMENOPAUSAL
     Dosage: 60 MG, Q6MO
     Route: 058
     Dates: start: 20111026
  5. HYDROCORTISONE [Concomitant]
  6. CALTRATE +VIT.D [Concomitant]
  7. TOPROL-XL [Concomitant]
     Dosage: UNK
  8. LORAZEPAM [Concomitant]
     Dosage: UNK

REACTIONS (3)
  - BLOOD POTASSIUM INCREASED [None]
  - TOOTHACHE [None]
  - JOINT CREPITATION [None]
